FAERS Safety Report 6210203-1 (Version None)
Quarter: 2009Q2

REPORT INFORMATION
  Report Type: 
  Country: None (occurrence: None)
  Receive Date: 20090601
  Receipt Date: 20090528
  Transmission Date: 20091009
  Serious: Yes (Death, Other)
  Sender: FDA-Public Use
  Company Number: US-BAYER-200837330NA

PATIENT
  Age: 16 Year
  Sex: Male

DRUGS (1)
  1. CAMPATH [Suspect]
     Indication: AUTOLOGOUS BONE MARROW TRANSPLANTATION THERAPY
     Dates: start: 20061109, end: 20061115

REACTIONS (3)
  - HEPATIC FAILURE [None]
  - MULTI-ORGAN FAILURE [None]
  - VENOOCCLUSIVE LIVER DISEASE [None]
